FAERS Safety Report 5063852-0 (Version None)
Quarter: 2006Q3

REPORT INFORMATION
  Report Type: 
  Country: None (occurrence: None)
  Receive Date: 20060726
  Receipt Date: 20060726
  Transmission Date: 20061208
  Serious: Yes (Hospitalization)
  Sender: FDA-Public Use
  Company Number: None

PATIENT
  Sex: Female
  Weight: 151.8 kg

DRUGS (16)
  1. TOPOTECAN [Suspect]
     Indication: MALIGNANT MELANOMA
     Dosage: (2.5 MG/M2) D1, 8, 15 OF 28 IV
     Route: 042
     Dates: start: 20060516, end: 20060718
  2. TEMOZOLOMIDE [Concomitant]
  3. IBUPROFEN [Concomitant]
  4. PERCOCET [Concomitant]
  5. DARVOCET [Concomitant]
  6. ACETAMINOPHEN [Concomitant]
  7. VOLTAREN [Concomitant]
  8. COMPAZINE [Concomitant]
  9. FOSAMAX [Concomitant]
  10. FENTANYL [Concomitant]
  11. LACTULOSE [Concomitant]
  12. LEXAPRO [Concomitant]
  13. PROCRIT [Concomitant]
  14. COREA [Concomitant]
  15. ENALAPRIL MALEATE [Concomitant]
  16. LORAZEPAM [Concomitant]

REACTIONS (3)
  - CONFUSIONAL STATE [None]
  - HYPONATRAEMIA [None]
  - LETHARGY [None]
